FAERS Safety Report 15636552 (Version 2)
Quarter: 2018Q4

REPORT INFORMATION
  Report Type: Report from Study
  Country: US (occurrence: US)
  Receive Date: 20181120
  Receipt Date: 20181211
  Transmission Date: 20190205
  Serious: Yes (Hospitalization, Other)
  Sender: FDA-Public Use
  Company Number: US-GILEAD-2018-0374863

PATIENT
  Age: 78 Year
  Sex: Male
  Weight: 75.28 kg

DRUGS (12)
  1. MIRALAX [Concomitant]
     Active Substance: POLYETHYLENE GLYCOL 3350
  2. OXYGEN. [Concomitant]
     Active Substance: OXYGEN
  3. ACETAMINOPHEN. [Concomitant]
     Active Substance: ACETAMINOPHEN
  4. AMBRISENTAN [Suspect]
     Active Substance: AMBRISENTAN
     Indication: PULMONARY ARTERIAL HYPERTENSION
     Dosage: 10 MG, QD
     Route: 048
     Dates: start: 20180709
  5. NORCO [Concomitant]
     Active Substance: ACETAMINOPHEN\HYDROCODONE BITARTRATE
  6. COLLAGEN [Concomitant]
     Active Substance: COLLAGEN
  7. CALCIUM [Concomitant]
     Active Substance: CALCIUM
  8. GLASSIA [Concomitant]
     Active Substance: .ALPHA.1-PROTEINASE INHIBITOR HUMAN
  9. RIVAROXABAN [Concomitant]
     Active Substance: RIVAROXABAN
  10. TADALAFIL. [Concomitant]
     Active Substance: TADALAFIL
  11. UMECLIDINIUM [Concomitant]
     Active Substance: UMECLIDINIUM BROMIDE
  12. COLACE CLEAR [Concomitant]
     Active Substance: DOCUSATE SODIUM

REACTIONS (1)
  - Osteoarthritis [Unknown]

NARRATIVE: CASE EVENT DATE: 20181031
